FAERS Safety Report 18788200 (Version 1)
Quarter: 2021Q1

REPORT INFORMATION
  Report Type: Other
  Country: US (occurrence: US)
  Receive Date: 20210125
  Receipt Date: 20210125
  Transmission Date: 20210419
  Serious: No
  Sender: FDA-Public Use
  Company Number: US-ACORDA-ACO_165024_2020

PATIENT
  Sex: Female

DRUGS (2)
  1. TECFIDERA [Suspect]
     Active Substance: DIMETHYL FUMARATE
     Indication: MULTIPLE SCLEROSIS
     Dosage: 240 MILLIGRAM, BID
     Route: 048
     Dates: start: 20140502
  2. DALFAMPRIDINE. [Suspect]
     Active Substance: DALFAMPRIDINE
     Indication: MEMORY IMPAIRMENT
     Dosage: 10 MILLIGRAM, UNK
     Route: 048

REACTIONS (4)
  - Off label use [Unknown]
  - Product dose omission issue [Unknown]
  - Cognitive disorder [Not Recovered/Not Resolved]
  - Hot flush [Recovered/Resolved]
